FAERS Safety Report 5078631-8 (Version None)
Quarter: 2006Q3

REPORT INFORMATION
  Report Type: 
  Country: None (occurrence: None)
  Receive Date: 20060809
  Receipt Date: 20060809
  Transmission Date: 20061208
  Serious: Yes (Death)
  Sender: FDA-Public Use
  Company Number: None

PATIENT
  Age: 58 Year
  Sex: Male
  Weight: 78.064 kg

DRUGS (2)
  1. TAXOTERE [Suspect]
     Indication: LUNG NEOPLASM MALIGNANT
     Dosage: 30 MG/M2 Q 21 DAYS
  2. GLEEVEC [Suspect]
     Indication: LUNG NEOPLASM MALIGNANT
     Dosage: 600 MG DAILY

REACTIONS (1)
  - DEATH [None]
